FAERS Safety Report 6844380-6 (Version None)
Quarter: 2010Q3

REPORT INFORMATION
  Report Type: 
  Country: None (occurrence: None)
  Receive Date: 20100715
  Receipt Date: 20080424
  Transmission Date: 20110219
  Serious: Yes (Other)
  Sender: FDA-Public Use
  Company Number: US-PFIZER INC-2008005166

PATIENT
  Age: 24 Year
  Sex: Female
  Weight: 52.2 kg

DRUGS (5)
  1. ZITHROMAX [Suspect]
     Indication: MYCOBACTERIAL INFECTION
     Route: 048
     Dates: start: 20080112, end: 20080115
  2. AMITRIPTYLINE HYDROCHLORIDE [Concomitant]
  3. XANAX [Concomitant]
  4. ADVIL LIQUI-GELS [Concomitant]
  5. ZANAFLEX [Concomitant]

REACTIONS (3)
  - DEAFNESS [None]
  - DRUG DISPENSING ERROR [None]
  - TINNITUS [None]
